FAERS Safety Report 21946962 (Version 1)
Quarter: 2023Q1

REPORT INFORMATION
  Report Type: Spontaneous
  Country: US (occurrence: None)
  Receive Date: 20230202
  Receipt Date: 20230202
  Transmission Date: 20230417
  Serious: Yes (Hospitalization)
  Sender: FDA-Public Use
  Company Number: None

PATIENT
  Age: 68 Year
  Sex: Female
  Weight: 112.9 kg

DRUGS (4)
  1. SAXENDA [Suspect]
     Active Substance: LIRAGLUTIDE
     Indication: Weight decreased
     Dosage: FREQUENCY : DAILY;?
     Route: 058
  2. SAXENDA [Suspect]
     Active Substance: LIRAGLUTIDE
     Indication: Self-medication
  3. LISINOPRIL [Concomitant]
     Active Substance: LISINOPRIL
  4. ACETAMINOPHEN [Concomitant]
     Active Substance: ACETAMINOPHEN

REACTIONS (6)
  - Confusional state [None]
  - Aphasia [None]
  - Hypoaesthesia [None]
  - Headache [None]
  - Dizziness [None]
  - Hypophagia [None]

NARRATIVE: CASE EVENT DATE: 20230201
